FAERS Safety Report 7562790-9 (Version None)
Quarter: 2011Q2

REPORT INFORMATION
  Report Type: 
  Country: None (occurrence: None)
  Receive Date: 20110622
  Receipt Date: 20110620
  Transmission Date: 20111010
  Serious: Yes (Death, Hospitalization)
  Sender: FDA-Public Use
  Company Number: CL-ABBOTT-11P-034-0733927-00

PATIENT
  Sex: Male

DRUGS (1)
  1. PALIVIZUMAB INJECTION [Suspect]
     Indication: ANTIVIRAL PROPHYLAXIS
     Route: 030
     Dates: start: 20110501, end: 20110501

REACTIONS (1)
  - RESPIRATORY TRACT INFECTION VIRAL [None]
